FAERS Safety Report 16935888 (Version 1)
Quarter: 2019Q4

REPORT INFORMATION
  Report Type: Spontaneous
  Country: US (occurrence: US)
  Receive Date: 20191018
  Receipt Date: 20191018
  Transmission Date: 20200122
  Serious: Yes (Other)
  Sender: FDA-Public Use
  Company Number: US-PFIZER INC-2019452812

PATIENT
  Age: 62 Year
  Sex: Male

DRUGS (15)
  1. CIALIS [Suspect]
     Active Substance: TADALAFIL
     Dosage: UNK, 1X/DAY
     Dates: start: 20131220, end: 20141220
  2. HYDROCHLOROTHIAZIDE. [Concomitant]
     Active Substance: HYDROCHLOROTHIAZIDE
     Indication: DIURETIC THERAPY
     Dosage: UNK
     Dates: start: 20111123, end: 20170226
  3. BENICAR [Concomitant]
     Active Substance: OLMESARTAN MEDOXOMIL
     Dosage: UNK
     Dates: start: 20100325
  4. METOPROLOL. [Concomitant]
     Active Substance: METOPROLOL
     Dosage: UNK
     Dates: start: 20101117, end: 20140109
  5. CIALIS [Suspect]
     Active Substance: TADALAFIL
     Indication: BENIGN PROSTATIC HYPERPLASIA
     Dosage: 1-2 TIMES PER WEEK (TAKEN INTERMITTENTLY WITH SILDENAFIL CITRATE)
     Dates: start: 20060701, end: 20131220
  6. METFORMIN [Concomitant]
     Active Substance: METFORMIN HYDROCHLORIDE
     Indication: BLOOD GLUCOSE ABNORMAL
     Dosage: UNK
     Dates: start: 20100325
  7. ASPIRIN. [Concomitant]
     Active Substance: ASPIRIN
     Indication: CARDIAC DISORDER
     Dosage: LOW DOSE
     Dates: start: 20100325
  8. LEVITRA [Suspect]
     Active Substance: VARDENAFIL HYDROCHLORIDE
     Indication: ERECTILE DYSFUNCTION
     Dosage: 10 MG (3 PILLS)
     Dates: start: 20080521, end: 20090825
  9. SERTRALINE [Concomitant]
     Active Substance: SERTRALINE HYDROCHLORIDE
     Dosage: UNK
     Dates: start: 20061108
  10. PRAVASTATIN. [Concomitant]
     Active Substance: PRAVASTATIN
     Indication: BLOOD CHOLESTEROL ABNORMAL
     Dosage: UNK
     Dates: start: 20111123, end: 20170226
  11. CIALIS [Suspect]
     Active Substance: TADALAFIL
     Dosage: 5 MG, 1X/DAY
     Dates: start: 20141220, end: 20171220
  12. FISH OIL [Concomitant]
     Active Substance: FISH OIL
     Indication: ARTHROPATHY
     Dosage: UNK
     Dates: start: 20100325
  13. VIAGRA [Suspect]
     Active Substance: SILDENAFIL CITRATE
     Indication: ERECTILE DYSFUNCTION
     Dosage: ONCE TO TWICE A WEEK (INTERMITTENTLY)
     Dates: start: 20060701, end: 20161220
  14. TESTOSTERONE. [Concomitant]
     Active Substance: TESTOSTERONE
     Indication: BLOOD TESTOSTERONE DECREASED
     Dosage: UNK
     Dates: start: 20150404, end: 20160729
  15. LISINOPRIL. [Concomitant]
     Active Substance: LISINOPRIL
     Dosage: UNK
     Dates: start: 20100324

REACTIONS (1)
  - Lentigo maligna [Unknown]

NARRATIVE: CASE EVENT DATE: 20160629
